FAERS Safety Report 7583133 (Version 2)
Quarter: 2013Q1

REPORT INFORMATION
  Report Type: Spontaneous
  Country: US (occurrence: US)
  Receive Date: 20100914
  Receipt Date: 20130308
  Transmission Date: 20140127
  Serious: Yes (Other)
  Sender: FDA-Public Use
  Company Number: US-BAYER-201033289NA

PATIENT
  Age: 46 Year
  Sex: Female

DRUGS (7)
  1. YAZ [Suspect]
     Indication: PRODUCT USED FOR UNKNOWN INDICATION
     Route: 048
     Dates: start: 2004
  2. YASMIN [Suspect]
  3. ATENOLOL [Concomitant]
     Dosage: 25 MG, DAILY
     Route: 048
     Dates: start: 200308
  4. CLINDAMYCIN [Concomitant]
     Dosage: 1 %, UNK
     Route: 061
  5. TRETINOIN [Concomitant]
     Dosage: 0.025 %, UNK
     Route: 061
     Dates: start: 20080708
  6. NEXIUM [Concomitant]
     Dosage: 40 MG, UNK
     Dates: start: 20080722
  7. TENORMIN [Concomitant]
     Indication: MITRAL VALVE PROLAPSE

REACTIONS (1)
  - Retinal artery thrombosis [None]
